FAERS Safety Report 23076649 (Version 1)
Quarter: 2023Q4

REPORT INFORMATION
  Report Type: Spontaneous
  Country: US (occurrence: US)
  Receive Date: 20231017
  Receipt Date: 20231017
  Transmission Date: 20240109
  Serious: No
  Sender: FDA-Public Use
  Company Number: US-JNJFOC-20231028326

PATIENT

DRUGS (1)
  1. SPRAVATO [Suspect]
     Active Substance: ESKETAMINE
     Indication: Major depression
     Route: 045
     Dates: start: 20231009, end: 20231009

REACTIONS (2)
  - Obsessive-compulsive disorder [Recovering/Resolving]
  - Violence-related symptom [Recovering/Resolving]

NARRATIVE: CASE EVENT DATE: 20231009
